FAERS Safety Report 8950713 (Version 1)
Quarter: 2012Q4

REPORT INFORMATION
  Report Type: 
  Country: US (occurrence: US)
  Receive Date: 20121207
  Receipt Date: 20121207
  Transmission Date: 20130627
  Serious: No
  Sender: FDA-Public Use
  Company Number: US-009507513-1212USA002002

PATIENT

DRUGS (1)
  1. SINEMET CR [Suspect]
     Dosage: 50/200 MG,UNK

REACTIONS (2)
  - Expired drug administered [Unknown]
  - No adverse event [Unknown]
